FAERS Safety Report 12852778 (Version 1)
Quarter: 2016Q4

REPORT INFORMATION
  Report Type: Spontaneous
  Country: US (occurrence: US)
  Receive Date: 20161017
  Receipt Date: 20161017
  Transmission Date: 20170207
  Serious: No
  Sender: FDA-Public Use
  Company Number: US-ASTRAZENECA-2016SF01428

PATIENT
  Sex: Female
  Weight: 104.3 kg

DRUGS (3)
  1. NOVOLIN [Concomitant]
     Active Substance: INSULIN HUMAN
     Dosage: 70/30 UNITS TWICE A DAY
     Route: 058
  2. OTHER MEDICATIONS [Concomitant]
     Active Substance: UNSPECIFIED INGREDIENT
     Dosage: 70/30 UNITS TWICE A DAY
     Route: 058
  3. BYDUREON [Suspect]
     Active Substance: EXENATIDE
     Indication: TYPE 2 DIABETES MELLITUS
     Route: 058
     Dates: start: 2010

REACTIONS (3)
  - Intentional device misuse [Unknown]
  - Injection site extravasation [Unknown]
  - Device malfunction [Unknown]
